FAERS Safety Report 6409786-8 (Version None)
Quarter: 2009Q4

REPORT INFORMATION
  Report Type: 
  Country: None (occurrence: None)
  Receive Date: 20091022
  Receipt Date: 20091014
  Transmission Date: 20100525
  Serious: Yes (Other)
  Sender: FDA-Public Use
  Company Number: JP-JNJFOC-20091005351

PATIENT
  Sex: Female
  Weight: 31 kg

DRUGS (2)
  1. ITRIZOLE [Suspect]
     Indication: FUNGAL INFECTION
     Route: 041
  2. TIENAM [Concomitant]
     Route: 042

REACTIONS (1)
  - HYPOTENSION [None]
